FAERS Safety Report 7357130-4 (Version None)
Quarter: 2011Q1

REPORT INFORMATION
  Report Type: 
  Country: None (occurrence: None)
  Receive Date: 20110311
  Receipt Date: 20110311
  Transmission Date: 20110831
  Serious: Yes (Death, Other)
  Sender: FDA-Public Use
  Company Number: None

PATIENT
  Age: 56 Year
  Sex: Male
  Weight: 123 kg

DRUGS (1)
  1. GABAPENTIN [Suspect]
     Indication: PAIN
     Dosage: OTHER PO
     Route: 048
     Dates: start: 20101027, end: 20101206

REACTIONS (3)
  - SUICIDAL IDEATION [None]
  - DEPRESSION [None]
  - FATIGUE [None]
